FAERS Safety Report 20839070 (Version 1)
Quarter: 2022Q2

REPORT INFORMATION
  Report Type: Report from Study
  Country: IT (occurrence: IT)
  Receive Date: 20220517
  Receipt Date: 20220517
  Transmission Date: 20220721
  Serious: Yes (Other)
  Sender: FDA-Public Use
  Company Number: IT-ABBVIE-22K-083-4395151-00

PATIENT
  Age: 57 Year
  Sex: Female
  Weight: 95 kg

DRUGS (7)
  1. UPADACITINIB [Suspect]
     Active Substance: UPADACITINIB
     Indication: Product used for unknown indication
     Route: 048
     Dates: start: 20211124
  2. AZATHIOPRINE [Concomitant]
     Active Substance: AZATHIOPRINE
     Indication: Rheumatoid arthritis
     Route: 048
     Dates: start: 20210715, end: 20211124
  3. BUPRENORPHINE [Concomitant]
     Active Substance: BUPRENORPHINE
     Indication: Rheumatoid arthritis
     Route: 062
     Dates: start: 20211123
  4. ALENDRONATE SODIUM [Concomitant]
     Active Substance: ALENDRONATE SODIUM
     Indication: Osteoporosis
     Dosage: 70 UG WEEKLY
     Route: 048
     Dates: start: 20211124
  5. SARS-COV-2 VACCINE [Concomitant]
     Indication: COVID-19 immunisation
     Dates: start: 20210415, end: 20210415
  6. SARS-COV-2 VACCINE [Concomitant]
     Dates: start: 20210515, end: 20210515
  7. SARS-COV-2 VACCINE [Concomitant]
     Dates: start: 2022, end: 2022

REACTIONS (3)
  - Transverse sinus thrombosis [Not Recovered/Not Resolved]
  - Xerophthalmia [Not Recovered/Not Resolved]
  - Vision blurred [Not Recovered/Not Resolved]

NARRATIVE: CASE EVENT DATE: 20220425
